FAERS Safety Report 7544460-6 (Version None)
Quarter: 2011Q2

REPORT INFORMATION
  Report Type: 
  Country: None (occurrence: None)
  Receive Date: 20110613
  Receipt Date: 20081103
  Transmission Date: 20111010
  Serious: Yes (Other)
  Sender: FDA-Public Use
  Company Number: PHMT2006CA00925

PATIENT
  Sex: Male
  Weight: 86.9 kg

DRUGS (2)
  1. AMLODIPINE BESYLATE [Concomitant]
  2. SANDOSTATIN LAR [Suspect]
     Indication: CARCINOID TUMOUR
     Dosage: 20 MG, ONCE A MONTH
     Route: 030
     Dates: start: 20000820

REACTIONS (7)
  - RENAL FUNCTION TEST ABNORMAL [None]
  - CHEST PAIN [None]
  - METASTASES TO BONE [None]
  - METASTASES TO LIVER [None]
  - FLUSHING [None]
  - DYSPNOEA [None]
  - NEOPLASM MALIGNANT [None]
